FAERS Safety Report 24227742 (Version 1)
Quarter: 2024Q3

REPORT INFORMATION
  Report Type: Spontaneous
  Country: US (occurrence: None)
  Receive Date: 20240819
  Receipt Date: 20240819
  Transmission Date: 20241017
  Serious: Yes (Hospitalization)
  Sender: Public
  Company Number: None

PATIENT
  Age: 62 Year
  Sex: Female

DRUGS (15)
  1. FINGOLIMOD [Suspect]
     Active Substance: FINGOLIMOD
     Dates: start: 20230209
  2. FESOTERODINE [Concomitant]
     Active Substance: FESOTERODINE
  3. CICLOPIROX [Concomitant]
     Active Substance: CICLOPIROX
  4. DICLOFENAC [Concomitant]
     Active Substance: DICLOFENAC
  5. BACLOFEN [Concomitant]
     Active Substance: BACLOFEN
  6. GABAPENTIN [Concomitant]
     Active Substance: GABAPENTIN
  7. VITAMIN D3 [Concomitant]
     Active Substance: CHOLECALCIFEROL
  8. CYCLOBENZAPRINE [Concomitant]
     Active Substance: CYCLOBENZAPRINE
  9. ESTRADIOL [Concomitant]
     Active Substance: ESTRADIOL
  10. OMEPRAZOLE [Concomitant]
     Active Substance: OMEPRAZOLE
  11. ACETAMINOPHEN [Concomitant]
     Active Substance: ACETAMINOPHEN
  12. NAPROXEN [Concomitant]
     Active Substance: NAPROXEN
  13. METFORMIN [Concomitant]
     Active Substance: METFORMIN HYDROCHLORIDE
  14. NM-6603 [Concomitant]
     Active Substance: NM-6603
  15. ASPIRIN [Concomitant]
     Active Substance: ASPIRIN

REACTIONS (3)
  - Fall [None]
  - Hypoaesthesia oral [None]
  - Urinary tract infection [None]

NARRATIVE: CASE EVENT DATE: 20240817
